FAERS Safety Report 12686573 (Version 1)
Quarter: 2016Q3

REPORT INFORMATION
  Report Type: Not Available
  Country: None (occurrence: US)
  Receive Date: 20160825
  Receipt Date: 20160825
  Transmission Date: 20161109
  Serious: Yes (Other)
  Sender: FDA-Public Use
  Company Number: US-AKORN-36511

PATIENT
  Sex: Female

DRUGS (1)
  1. CIPROFLOXACIN 0.3% OPHTHALMIC SOLUTION, USP [Suspect]
     Active Substance: CIPROFLOXACIN

REACTIONS (4)
  - Eyelash injury [Unknown]
  - Eye swelling [None]
  - Ocular hyperaemia [None]
  - Eye pain [Recovered/Resolved]
